FAERS Safety Report 8989116 (Version 3)
Quarter: 2013Q1

REPORT INFORMATION
  Report Type: Report from Study
  Country: JP (occurrence: JP)
  Receive Date: 20121227
  Receipt Date: 20130228
  Transmission Date: 20140127
  Serious: Yes (Death)
  Sender: FDA-Public Use
  Company Number: JP-B.I. PHARMACEUTICALS,INC./RIDGEFIELD-2012-BI-04128NB

PATIENT
  Age: 79 Year
  Sex: Female
  Weight: 53 kg

DRUGS (7)
  1. PRAZAXA [Suspect]
     Indication: ATRIAL FIBRILLATION
     Dosage: 220 MG
     Route: 048
     Dates: start: 20120728, end: 20121220
  2. PRAZAXA [Suspect]
     Indication: CEREBROVASCULAR ACCIDENT PROPHYLAXIS
     Dosage: 150 MG
     Route: 048
     Dates: start: 20120813
  3. PRAZAXA [Suspect]
     Indication: THROMBOSIS PROPHYLAXIS
  4. LIPITOR [Concomitant]
     Dosage: 10 MG
     Route: 048
     Dates: start: 20100129
  5. MICARDIS [Concomitant]
     Dosage: 40 MG
     Route: 048
     Dates: start: 20120519
  6. CALBLOCK [Concomitant]
     Dosage: 16 MG
     Route: 048
  7. FLUITRAN [Concomitant]
     Dosage: 2 MG
     Route: 048
     Dates: start: 20120714

REACTIONS (3)
  - Drowning [Fatal]
  - Fall [Fatal]
  - Activated partial thromboplastin time prolonged [Recovered/Resolved]
